FAERS Safety Report 23039944 (Version 1)
Quarter: 2023Q4

REPORT INFORMATION
  Report Type: Spontaneous
  Country: DE (occurrence: DE)
  Receive Date: 20231006
  Receipt Date: 20231006
  Transmission Date: 20240110
  Serious: Yes (Other)
  Sender: FDA-Public Use
  Company Number: None

PATIENT
  Age: 45 Year
  Sex: Male

DRUGS (3)
  1. RAMIPRIL [Suspect]
     Active Substance: RAMIPRIL
     Indication: Hypertension
     Dosage: .5 DOSAGE FORMS DAILY; 1/2-0-0, RAMIPRIL ABZ 2.5 MG TABLETS
     Dates: start: 20230831, end: 20230902
  2. LAMOTRIGINE [Suspect]
     Active Substance: LAMOTRIGINE
     Indication: Epilepsy
     Dosage: LAMOTRIGINE ARISTO 100 MG TABLETS FOR ORAL SUSPENSION, 1-0-1 CONTINUOUS INTAKE FOR SEVERAL YEARS
  3. ALLOPURINOL [Concomitant]
     Active Substance: ALLOPURINOL
     Indication: Hyperuricaemia
     Dosage: 100 MILLIGRAM DAILY; 1-0-0 CONTINUOUS INTAKE FOR SEVERAL YEARS, ALLOPURINOL ABZ 100 MG TABLETS

REACTIONS (9)
  - Hyponatraemia [Unknown]
  - Partial seizures [Recovered/Resolved]
  - Dizziness [Recovered/Resolved]
  - Feeling abnormal [Recovered/Resolved]
  - Aphasia [Recovered/Resolved]
  - Visual impairment [Recovered/Resolved]
  - Sensory disturbance [Recovered/Resolved]
  - Cognitive disorder [Recovered/Resolved]
  - Drug level decreased [Unknown]

NARRATIVE: CASE EVENT DATE: 20230902
